FAERS Safety Report 10519663 (Version 4)
Quarter: 2014Q4

REPORT INFORMATION
  Report Type: Spontaneous
  Country: US (occurrence: US)
  Receive Date: 20141015
  Receipt Date: 20141217
  Transmission Date: 20150528
  Serious: Yes (Other)
  Sender: FDA-Public Use
  Company Number: US-PFIZER INC-2014278416

PATIENT
  Age: 66 Year
  Sex: Male

DRUGS (2)
  1. ZOFRAN [Concomitant]
     Active Substance: ONDANSETRON HYDROCHLORIDE
     Dosage: UNK
  2. SUTENT [Suspect]
     Active Substance: SUNITINIB MALATE
     Dosage: 50 MG, 28 DAYS ON AND 14 DAYS OFF
     Dates: start: 20141005, end: 20141009

REACTIONS (13)
  - Constipation [Unknown]
  - Proteinuria [Unknown]
  - Kidney infection [Unknown]
  - Sleep disorder [Unknown]
  - Malaise [Unknown]
  - Pyrexia [Unknown]
  - Fatigue [Unknown]
  - Dry mouth [Unknown]
  - Nausea [Recovered/Resolved]
  - Urinary tract infection [Unknown]
  - Chest pain [Recovered/Resolved]
  - Dizziness [Unknown]
  - Asthenia [Unknown]

NARRATIVE: CASE EVENT DATE: 201410
